FAERS Safety Report 8273783-0 (Version None)
Quarter: 2012Q2

REPORT INFORMATION
  Report Type: 
  Country: None (occurrence: None)
  Receive Date: 20120411
  Receipt Date: 20120403
  Transmission Date: 20120825
  Serious: Yes (Hospitalization)
  Sender: FDA-Public Use
  Company Number: AU-ASTRAZENECA-2012SE22509

PATIENT
  Age: 71 Year
  Sex: Male

DRUGS (1)
  1. BRILINTA [Suspect]
     Dosage: 1 DOSE UNSPECIFIED, 2 TIMES
     Route: 048

REACTIONS (2)
  - DYSPNOEA [None]
  - SUFFOCATION FEELING [None]
